FAERS Safety Report 12797039 (Version 2)
Quarter: 2016Q4

REPORT INFORMATION
  Report Type: Spontaneous
  Country: US (occurrence: US)
  Receive Date: 20160930
  Receipt Date: 20161018
  Transmission Date: 20170207
  Serious: No
  Sender: FDA-Public Use
  Company Number: US-PFIZER INC-2016447724

PATIENT
  Age: 69 Year
  Sex: Female
  Weight: 85.73 kg

DRUGS (6)
  1. WARFARIN [Suspect]
     Active Substance: WARFARIN
     Dosage: 2.5 MG, 1X/DAY (AT NIGHT ON SUNDAY, TUESDAY, THURSDAY, SATURDAY)
  2. XELJANZ [Suspect]
     Active Substance: TOFACITINIB CITRATE
     Indication: RHEUMATOID ARTHRITIS
     Dosage: 5 MG, 2X/DAY
     Route: 048
     Dates: start: 20160415
  3. WARFARIN [Suspect]
     Active Substance: WARFARIN
     Indication: CARDIAC VALVE DISEASE
     Dosage: UNK
     Dates: start: 2005
  4. WARFARIN [Suspect]
     Active Substance: WARFARIN
     Dosage: 5 MG, 1X/DAY (AT NIGHT ON MONDAY, WEDNESDAY, FRIDAY)
  5. WARFARIN [Suspect]
     Active Substance: WARFARIN
     Dosage: 5 MG, 1X/DAY (AT NIGHT ON SUNDAY, TUESDAY, THURSDAY, SATURDAY)
  6. WARFARIN [Suspect]
     Active Substance: WARFARIN
     Dosage: 2.5 MG, 1X/DAY (AT NIGHT ON MONDAY, WEDNESDAY, FRIDAY)

REACTIONS (1)
  - Purpura [Not Recovered/Not Resolved]

NARRATIVE: CASE EVENT DATE: 2016
